FAERS Safety Report 19889326 (Version 1)
Quarter: 2021Q3

REPORT INFORMATION
  Report Type: Spontaneous
  Country: US (occurrence: US)
  Receive Date: 20210928
  Receipt Date: 20210928
  Transmission Date: 20211014
  Serious: Yes (Other)
  Sender: FDA-Public Use
  Company Number: US-AUROBINDO-AUR-APL-2021-039368

PATIENT
  Age: 63 Year
  Sex: Female

DRUGS (6)
  1. NOREPINEPHRINE. [Suspect]
     Active Substance: NOREPINEPHRINE
     Dosage: 4 MICROGRAM/MINUTE
     Route: 065
  2. NOREPINEPHRINE. [Suspect]
     Active Substance: NOREPINEPHRINE
     Dosage: 20 MICROGRAM/MINUTE
     Route: 065
  3. PHENYLEPHRINE HYDROCHLORIDE INJECTION [Suspect]
     Active Substance: PHENYLEPHRINE HYDROCHLORIDE
     Indication: HYPOTENSION
     Dosage: 50 MICROGRAM/MINUTE
     Route: 065
  4. VASOPRESSIN. [Suspect]
     Active Substance: VASOPRESSIN
     Indication: HYPOTENSION
     Dosage: 0.04 UNITS/MINUTES
     Route: 065
  5. PHENYLEPHRINE HYDROCHLORIDE INJECTION [Suspect]
     Active Substance: PHENYLEPHRINE HYDROCHLORIDE
     Dosage: 100 MICROGRAM/MINUTE
     Route: 065
  6. NOREPINEPHRINE. [Suspect]
     Active Substance: NOREPINEPHRINE
     Indication: HYPOTENSION
     Dosage: 2 MICROGRAM/MINUTE
     Route: 065

REACTIONS (1)
  - Drug ineffective [Unknown]
